FAERS Safety Report 9092506 (Version 2)
Quarter: 2013Q1

REPORT INFORMATION
  Report Type: Spontaneous
  Country: US (occurrence: US)
  Receive Date: 20130131
  Receipt Date: 20130228
  Transmission Date: 20140127
  Serious: Yes (Other)
  Sender: FDA-Public Use
  Company Number: US-SANOFI-AVENTIS-2013SA007777

PATIENT
  Sex: Male

DRUGS (2)
  1. LANTUS [Suspect]
     Route: 058
     Dates: start: 2003
  2. NOVOLOG [Concomitant]
     Route: 065

REACTIONS (2)
  - Nephropathy [Unknown]
  - Blindness unilateral [Not Recovered/Not Resolved]
